FAERS Safety Report 4996510-9 (Version None)
Quarter: 2006Q2

REPORT INFORMATION
  Report Type: 
  Country: None (occurrence: None)
  Receive Date: 20060509
  Receipt Date: 20060505
  Transmission Date: 20061013
  Serious: Yes (Death, Hospitalization)
  Sender: FDA-Public Use
  Company Number: PHEH2006US05926

PATIENT
  Age: 72 Year
  Sex: Female
  Weight: 51.247 kg

DRUGS (2)
  1. REVLIMID [Concomitant]
  2. EXJADE [Suspect]
     Indication: HAEMOSIDEROSIS
     Dosage: 500 MG, QD
     Route: 048
     Dates: start: 20060120, end: 20060313

REACTIONS (5)
  - DEATH [None]
  - DISEASE PROGRESSION [None]
  - MYELODYSPLASTIC SYNDROME [None]
  - PANCYTOPENIA [None]
  - THROMBOCYTOPENIA [None]
